FAERS Safety Report 4738406-3 (Version None)
Quarter: 2005Q3

REPORT INFORMATION
  Report Type: 
  Country: None (occurrence: None)
  Receive Date: 20050809
  Receipt Date: 20050803
  Transmission Date: 20060218
  Serious: Yes (Hospitalization)
  Sender: FDA-Public Use
  Company Number: IT-GLAXOSMITHKLINE-B0389899A

PATIENT
  Age: 80 Year
  Sex: Female

DRUGS (1)
  1. AUGMENTIN '125' [Suspect]
     Indication: INFECTION PROPHYLAXIS
     Route: 048
     Dates: start: 20050725, end: 20050729

REACTIONS (3)
  - OEDEMA [None]
  - PURPURA [None]
  - RASH ERYTHEMATOUS [None]
